FAERS Safety Report 4627620-3 (Version None)
Quarter: 2005Q2

REPORT INFORMATION
  Report Type: 
  Country: None (occurrence: None)
  Receive Date: 20050401
  Receipt Date: 20050401
  Transmission Date: 20051028
  Serious: Yes (Other)
  Sender: FDA-Public Use
  Company Number: None

PATIENT
  Age: 41 Year
  Sex: Male
  Weight: 97.5234 kg

DRUGS (1)
  1. RIMANTADINE HCL [Suspect]
     Indication: INFLUENZA
     Dosage: 2/DAY ORAL
     Route: 048
     Dates: start: 20050321, end: 20050328

REACTIONS (1)
  - DEPRESSION [None]
